FAERS Safety Report 4354466-6 (Version None)
Quarter: 2004Q2

REPORT INFORMATION
  Report Type: 
  Country: None (occurrence: None)
  Receive Date: 20040503
  Receipt Date: 20040429
  Transmission Date: 20050107
  Serious: Yes (Other)
  Sender: FDA-Public Use
  Company Number: 2004-04-1589

PATIENT
  Age: 44 Year
  Sex: Female

DRUGS (2)
  1. PEG-INTRON [Suspect]
     Indication: HEPATITIS C
     Dates: start: 20010901, end: 20020201
  2. RIBAVIRIN [Suspect]
     Indication: HEPATITIS C
     Dosage: ORAL
     Route: 048
     Dates: start: 20010901, end: 20020201

REACTIONS (4)
  - BLINDNESS DAY [None]
  - HYPOTHYROIDISM [None]
  - PRESBYOPIA [None]
  - VISUAL DISTURBANCE [None]
